FAERS Safety Report 5190057-5 (Version None)
Quarter: 2006Q4

REPORT INFORMATION
  Report Type: 
  Country: None (occurrence: None)
  Receive Date: 20061222
  Receipt Date: 20061212
  Transmission Date: 20070319
  Serious: Yes (Other)
  Sender: FDA-Public Use
  Company Number: FR-JNJFOC-20061203838

PATIENT
  Age: 17 Year
  Sex: Female

DRUGS (5)
  1. INFLIXIMAB [Suspect]
     Route: 042
  2. INFLIXIMAB [Suspect]
     Indication: TAKAYASU'S ARTERITIS
     Route: 042
  3. CORTICOTHERAPY [Concomitant]
  4. METHOTREXATE [Concomitant]
     Indication: TAKAYASU'S ARTERITIS
  5. AZATHIOPRINE [Concomitant]
     Indication: TAKAYASU'S ARTERITIS

REACTIONS (1)
  - TAKAYASU'S ARTERITIS [None]
